FAERS Safety Report 15900107 (Version 4)
Quarter: 2019Q2

REPORT INFORMATION
  Report Type: Spontaneous
  Country: US (occurrence: US)
  Receive Date: 20190201
  Receipt Date: 20190614
  Transmission Date: 20190711
  Serious: Yes (Disabling, Other)
  Sender: FDA-Public Use
  Company Number: US-PFIZER INC-2019048249

PATIENT
  Age: 64 Year
  Sex: Female
  Weight: 71 kg

DRUGS (22)
  1. LYRICA [Suspect]
     Active Substance: PREGABALIN
     Indication: FIBROMYALGIA
  2. NYSTATIN. [Concomitant]
     Active Substance: NYSTATIN
     Dosage: [5CC SWISH AND SPIT AFTER EACH MEAL AND AT BEDTIME]
     Dates: start: 20190211
  3. VALACYCLOVIR HCL [Concomitant]
     Active Substance: VALACYCLOVIR HYDROCHLORIDE
     Dosage: 500 MG, 2X/DAY [500 MG TWICE A DAY FOR 7 DAYS]
     Dates: start: 20180212
  4. ZOFRAN [Concomitant]
     Active Substance: ONDANSETRON HYDROCHLORIDE
     Dosage: 8 MG, AS NEEDED (8 HOURS PRN (AS NEEDED))
     Dates: start: 20190225
  5. LEVOTHYROXINE SODIUM. [Concomitant]
     Active Substance: LEVOTHYROXINE SODIUM
     Dosage: 88 UG, DAILY
     Dates: start: 20180501
  6. ZYRTEC [Concomitant]
     Active Substance: CETIRIZINE HYDROCHLORIDE
     Dosage: 10 MG, DAILY
     Dates: start: 20180314
  7. FLUTICASONE PROPIONATE. [Concomitant]
     Active Substance: FLUTICASONE PROPIONATE
     Dosage: 2 SPRAYS EACH NOSTRIL ONCE A DAY
     Route: 045
     Dates: start: 20180314
  8. LYRICA [Suspect]
     Active Substance: PREGABALIN
     Indication: NERVE INJURY
     Dosage: 75 MG, 3X/DAY
     Route: 048
     Dates: start: 20181130
  9. ESTRADIOL. [Concomitant]
     Active Substance: ESTRADIOL
     Dosage: 1 MG, DAILY
     Dates: start: 20190205
  10. DRISDOL [Concomitant]
     Active Substance: ERGOCALCIFEROL
     Dosage: 50000 IU, WEEKLY
     Dates: start: 20181105
  11. VENTOLIN HFA [Concomitant]
     Active Substance: ALBUTEROL SULFATE
     Indication: DYSPNOEA
     Dosage: 108 (90 BASE) MCG/ACT, TAKE 2 PUFFS EVERY 4-6 HOURS AS NECESSARY
     Dates: start: 20180517
  12. MELOXICAM. [Concomitant]
     Active Substance: MELOXICAM
     Dosage: [0.5-1 TABLET] DAILY
     Dates: start: 20181210
  13. OMEPRAZOLE. [Concomitant]
     Active Substance: OMEPRAZOLE
     Dosage: 40 MG, 2X/DAY
     Dates: start: 20180702
  14. SYMBICORT [Concomitant]
     Active Substance: BUDESONIDE\FORMOTEROL FUMARATE DIHYDRATE
     Dosage: BUDESONIDE 160MCG, FORMOTEROL FUMARATE 4.5MCG, 1 AEROSOL DAILY
     Dates: start: 20170927
  15. FLUOXETINE HCL [Concomitant]
     Active Substance: FLUOXETINE HYDROCHLORIDE
     Dosage: 20 MG, DAILY
     Dates: start: 20181010
  16. PRAMIPEXOLE DIHYDROCHLORIDE. [Concomitant]
     Active Substance: PRAMIPEXOLE DIHYDROCHLORIDE
     Dosage: 1 MG, 1X/DAY(BED TIME)
     Dates: start: 20181211
  17. ROSUVASTATIN CALCIUM. [Concomitant]
     Active Substance: ROSUVASTATIN CALCIUM
     Dosage: 40 MG, 1X/DAY(BEDTIME)
     Dates: start: 20181105
  18. LISINOPRIL. [Concomitant]
     Active Substance: LISINOPRIL
     Dosage: 10 MG, DAILY
     Dates: start: 20180606
  19. ALBUTEROL SULFATE. [Concomitant]
     Active Substance: ALBUTEROL SULFATE
     Dosage: 0.5 ML, UNK
     Dates: start: 20180411
  20. VALACYCLOVIR HCL [Concomitant]
     Active Substance: VALACYCLOVIR HYDROCHLORIDE
     Dosage: 500 MG, DAILY
  21. LYRICA [Suspect]
     Active Substance: PREGABALIN
     Indication: NEURALGIA
  22. CARAFATE [Concomitant]
     Active Substance: SUCRALFATE
     Dosage: 1 G, 2X/DAY
     Dates: start: 20190130

REACTIONS (5)
  - Neuropathy peripheral [Unknown]
  - Gait disturbance [Unknown]
  - Condition aggravated [Unknown]
  - Off label use [Unknown]
  - Pain [Unknown]
